FAERS Safety Report 6307508-2 (Version None)
Quarter: 2009Q3

REPORT INFORMATION
  Report Type: 
  Country: None (occurrence: None)
  Receive Date: 20090810
  Receipt Date: 20090730
  Transmission Date: 20100115
  Serious: Yes (Disabling)
  Sender: FDA-Public Use
  Company Number: 2009-03143

PATIENT
  Age: 65 Year
  Sex: Male
  Weight: 68 kg

DRUGS (3)
  1. VELCADE [Suspect]
     Indication: DRUG USE FOR UNKNOWN INDICATION
     Dosage: 1.3 MG/M2, INTRAVENOUS; 0.7 MG/M2, INTRAVENOUS
     Route: 042
     Dates: start: 20061017, end: 20070311
  2. THALIDOMIDE [Suspect]
     Indication: DRUG USE FOR UNKNOWN INDICATION
     Dosage: 200 MG, ORAL
     Route: 048
     Dates: start: 20061017, end: 20070311
  3. DEXAMETHASONE [Concomitant]

REACTIONS (10)
  - AREFLEXIA [None]
  - ASTHENIA [None]
  - AUTONOMIC NERVOUS SYSTEM IMBALANCE [None]
  - AXONAL NEUROPATHY [None]
  - CONSTIPATION [None]
  - DYSGRAPHIA [None]
  - GAIT DISTURBANCE [None]
  - PERIPHERAL SENSORY NEUROPATHY [None]
  - SENSATION OF HEAVINESS [None]
  - STEM CELL TRANSPLANT [None]
